FAERS Safety Report 6971536-4 (Version None)
Quarter: 2010Q3

REPORT INFORMATION
  Report Type: 
  Country: None (occurrence: None)
  Receive Date: 20100908
  Receipt Date: 20100825
  Transmission Date: 20110219
  Serious: Yes (Hospitalization)
  Sender: FDA-Public Use
  Company Number: US-ELI_LILLY_AND_COMPANY-US201008008931

PATIENT
  Sex: Female

DRUGS (7)
  1. FORTEO [Suspect]
     Dosage: 20 UG, DAILY (1/D)
     Dates: end: 20100802
  2. ANTIHYPERTENSIVES [Concomitant]
  3. CYMBALTA [Concomitant]
     Dosage: UNK, UNK
  4. VITAMIN D [Concomitant]
  5. VITAMIN TAB [Concomitant]
  6. PERCOCET [Concomitant]
  7. AMBIEN [Concomitant]

REACTIONS (3)
  - ILL-DEFINED DISORDER [None]
  - MOVEMENT DISORDER [None]
  - SURGERY [None]
